FAERS Safety Report 7790694-5 (Version None)
Quarter: 2011Q3

REPORT INFORMATION
  Report Type: 
  Country: None (occurrence: None)
  Receive Date: 20110930
  Receipt Date: 20110930
  Transmission Date: 20111222
  Serious: Yes (Hospitalization)
  Sender: FDA-Public Use
  Company Number: DE-ABBOTT-11P-062-0853725-00

PATIENT
  Sex: Male
  Weight: 100 kg

DRUGS (3)
  1. HUMIRA [Suspect]
     Indication: PSORIASIS
     Route: 058
     Dates: start: 20090101, end: 20100101
  2. HUMIRA [Suspect]
     Route: 058
     Dates: start: 20110101, end: 20110901
  3. HUMIRA [Suspect]
     Indication: PSORIATIC ARTHROPATHY
     Route: 058
     Dates: start: 20100701, end: 20100901

REACTIONS (3)
  - PULMONARY SARCOIDOSIS [None]
  - DEPRESSION [None]
  - CUTANEOUS SARCOIDOSIS [None]
